FAERS Safety Report 4607824-6 (Version None)
Quarter: 2005Q1

REPORT INFORMATION
  Report Type: 
  Country: None (occurrence: None)
  Receive Date: 20050314
  Receipt Date: 20050309
  Transmission Date: 20050727
  Serious: Yes (Hospitalization)
  Sender: FDA-Public Use
  Company Number: US-GLAXOSMITHKLINE-A0548975A

PATIENT
  Age: 79 Year
  Sex: Male
  Weight: 71 kg

DRUGS (4)
  1. SENSODYNE-F [Suspect]
     Indication: SENSITIVITY OF TEETH
     Dates: start: 20020101
  2. LOVASTATIN [Concomitant]
     Route: 048
  3. LASIX [Concomitant]
     Route: 048
  4. BLOOD PRESSURE MEDICATION [Concomitant]

REACTIONS (5)
  - CARDIAC VALVE DISEASE [None]
  - CORONARY ARTERY OCCLUSION [None]
  - DYSPNOEA [None]
  - FATIGUE [None]
  - LETHARGY [None]
